FAERS Safety Report 12339670 (Version 1)
Quarter: 2016Q2

REPORT INFORMATION
  Report Type: Spontaneous
  Country: US (occurrence: US)
  Receive Date: 20160505
  Receipt Date: 20160505
  Transmission Date: 20160815
  Serious: No
  Sender: FDA-Public Use
  Company Number: US-SHIRE-US201605566

PATIENT
  Age: 5 Year
  Sex: Male

DRUGS (1)
  1. VYVANSE [Suspect]
     Active Substance: LISDEXAMFETAMINE DIMESYLATE
     Dosage: 30 MG, 1X/DAY:QD
     Route: 048
     Dates: end: 2016

REACTIONS (5)
  - Hyperhidrosis [Unknown]
  - Tic [Unknown]
  - Dyspnoea [Unknown]
  - Somnolence [Unknown]
  - Drug administered to patient of inappropriate age [Recovered/Resolved]
